FAERS Safety Report 19132256 (Version 2)
Quarter: 2021Q2

REPORT INFORMATION
  Report Type: Spontaneous
  Country: US (occurrence: US)
  Receive Date: 20210413
  Receipt Date: 20210423
  Transmission Date: 20210717
  Serious: No
  Sender: FDA-Public Use
  Company Number: US-TEVA-2021-US-1899012

PATIENT
  Age: 69 Year
  Sex: Male

DRUGS (3)
  1. METOPROLOL SUCCINATE TEVA [Suspect]
     Active Substance: METOPROLOL SUCCINATE
     Dosage: EXTENDED?RELEASE TABLETS
     Route: 065
  2. DIAZEPAM. [Suspect]
     Active Substance: DIAZEPAM
     Route: 065
  3. ACETAMINOPHEN AND CODEINE [Suspect]
     Active Substance: ACETAMINOPHEN\CODEINE PHOSPHATE
     Dosage: 300 MG?60MG TABLETS
     Route: 065

REACTIONS (3)
  - Hypersensitivity [Unknown]
  - Asthma [Unknown]
  - Bladder dysfunction [Unknown]
